FAERS Safety Report 9693974 (Version 1)
Quarter: 2013Q4

REPORT INFORMATION
  Report Type: Spontaneous
  Country: US (occurrence: US)
  Receive Date: 20131118
  Receipt Date: 20131118
  Transmission Date: 20140711
  Serious: Yes (Life-Threatening, Hospitalization, Other)
  Sender: FDA-Public Use
  Company Number: US-ELI_LILLY_AND_COMPANY-US201311003612

PATIENT
  Sex: Female

DRUGS (8)
  1. HUMALOG LISPRO [Suspect]
     Indication: TYPE 1 DIABETES MELLITUS
     Dosage: UNK UNK, UNKNOWN
     Route: 065
     Dates: start: 2011
  2. NOVOLOG [Suspect]
     Indication: TYPE 1 DIABETES MELLITUS
     Dosage: UNK, UNKNOWN
     Route: 065
  3. LISINOPRIL [Concomitant]
     Dosage: 5 MG, QD
  4. METOPROLOL [Concomitant]
     Dosage: 100 MG, BID
  5. PACERONE [Concomitant]
     Dosage: 400 MG, QD
  6. TRAMADOL [Concomitant]
     Dosage: 50 MG, PRN
  7. SIMVASTATIN [Concomitant]
     Dosage: 20 MG, QD
  8. CILOSTAZOL [Concomitant]
     Dosage: 100 MG, BID

REACTIONS (3)
  - Cardiac arrest [Unknown]
  - Blood glucose increased [Unknown]
  - Atrial fibrillation [Unknown]
